FAERS Safety Report 9777591 (Version 2)
Quarter: 2014Q1

REPORT INFORMATION
  Report Type: Report from Study
  Country: DE (occurrence: DE)
  Receive Date: 20131222
  Receipt Date: 20140306
  Transmission Date: 20141002
  Serious: Yes (Hospitalization, Other)
  Sender: FDA-Public Use
  Company Number: DE-ROCHE-1322786

PATIENT
  Sex: 0

DRUGS (2)
  1. NAPROXEN [Suspect]
     Indication: SPONDYLITIS
     Route: 048
  2. INFLIXIMAB [Suspect]
     Indication: SPONDYLITIS
     Route: 042

REACTIONS (2)
  - Tuberculosis [Unknown]
  - Pneumonia [Unknown]
